FAERS Safety Report 13127580 (Version 1)
Quarter: 2017Q1

REPORT INFORMATION
  Report Type: Spontaneous
  Country: US (occurrence: US)
  Receive Date: 20170118
  Receipt Date: 20170118
  Transmission Date: 20170428
  Serious: No
  Sender: FDA-Public Use
  Company Number: US-NOVOPROD-519618

PATIENT
  Age: 64 Year
  Sex: Female

DRUGS (1)
  1. TRESIBA FLEXTOUCH U200 [Suspect]
     Active Substance: INSULIN DEGLUDEC
     Indication: PRODUCT USED FOR UNKNOWN INDICATION
     Dosage: 20 U, QD
     Route: 058
     Dates: start: 20161006, end: 20161107

REACTIONS (4)
  - Hypoglycaemia [Recovered/Resolved]
  - Neuropathy peripheral [Recovered/Resolved]
  - Off label use [Recovered/Resolved]
  - Rash [Recovered/Resolved]

NARRATIVE: CASE EVENT DATE: 2016
